FAERS Safety Report 8512661-6 (Version None)
Quarter: 2012Q3

REPORT INFORMATION
  Report Type: 
  Country: None (occurrence: None)
  Receive Date: 20120716
  Receipt Date: 20120712
  Transmission Date: 20120928
  Serious: Yes (Other)
  Sender: FDA-Public Use
  Company Number: JP-PFIZER INC-2012141715

PATIENT
  Age: 50 Year
  Sex: Female

DRUGS (3)
  1. ADALAT CC [Suspect]
     Dosage: UNK
     Route: 048
     Dates: start: 20120601, end: 20120611
  2. ALDACTONE [Suspect]
     Indication: OEDEMA
     Dosage: 50 MG, DAILY
     Route: 048
     Dates: start: 20120609, end: 20120611
  3. LASIX [Suspect]
     Route: 065

REACTIONS (2)
  - PYREXIA [None]
  - WHITE BLOOD CELL COUNT DECREASED [None]
